FAERS Safety Report 8809698 (Version 1)
Quarter: 2012Q4

REPORT INFORMATION
  Report Type: 
  Country: US (occurrence: US)
  Receive Date: 20120926
  Receipt Date: 20120926
  Transmission Date: 20130627
  Serious: Yes (Other)
  Sender: FDA-Public Use
  Company Number: US-ROCHE-1104122

PATIENT
  Sex: Female

DRUGS (8)
  1. AVASTIN [Suspect]
     Indication: BREAST CANCER FEMALE
     Route: 065
  2. AVASTIN [Suspect]
     Indication: HAEMATOLOGICAL MALIGNANCY
  3. HERCEPTIN [Suspect]
     Indication: BREAST CANCER FEMALE
     Dosage: 8 cycles of the regimen
     Route: 065
  4. HERCEPTIN [Suspect]
     Indication: HAEMATOLOGICAL MALIGNANCY
     Route: 065
  5. XELODA [Suspect]
     Indication: BREAST CANCER FEMALE
     Route: 065
  6. XELODA [Suspect]
     Indication: HAEMATOLOGICAL MALIGNANCY
  7. AREDIA [Concomitant]
  8. TAXOL [Concomitant]

REACTIONS (2)
  - Disease progression [Unknown]
  - Post herpetic neuralgia [Unknown]
